FAERS Safety Report 8049957-0 (Version None)
Quarter: 2012Q1

REPORT INFORMATION
  Report Type: 
  Country: None (occurrence: None)
  Receive Date: 20120117
  Receipt Date: 20120113
  Transmission Date: 20120608
  Serious: Yes (Other)
  Sender: FDA-Public Use
  Company Number: US-PFIZER INC-2011222870

PATIENT
  Sex: Female
  Weight: 90.703 kg

DRUGS (2)
  1. LYRICA [Suspect]
     Indication: PAIN
     Dosage: UNK, 1X/DAY
     Route: 048
  2. LIPITOR [Concomitant]
     Dosage: UNK

REACTIONS (4)
  - KNEE ARTHROPLASTY [None]
  - PAIN [None]
  - DRUG INEFFECTIVE [None]
  - WITHDRAWAL SYNDROME [None]
